FAERS Safety Report 24792668 (Version 1)
Quarter: 2024Q4

REPORT INFORMATION
  Report Type: Spontaneous
  Country: AT (occurrence: AT)
  Receive Date: 20241231
  Receipt Date: 20241231
  Transmission Date: 20250114
  Serious: Yes (Life-Threatening, Hospitalization, Disabling, Other)
  Sender: HIKMA
  Company Number: None

PATIENT
  Sex: Male

DRUGS (3)
  1. CIPROFLOXACIN [Suspect]
     Active Substance: CIPROFLOXACIN
     Indication: Sudden hearing loss
     Dosage: UNKNOWN
     Route: 065
     Dates: start: 2017
  2. CIPROFLOXACIN [Suspect]
     Active Substance: CIPROFLOXACIN
     Indication: Eye inflammation
  3. CIPROFLOXACIN [Suspect]
     Active Substance: CIPROFLOXACIN
     Indication: Ear infection

REACTIONS (11)
  - Psychotic disorder [Not Recovered/Not Resolved]
  - Suicidal ideation [Not Recovered/Not Resolved]
  - Hypoacusis [Not Recovered/Not Resolved]
  - Insomnia [Not Recovered/Not Resolved]
  - Illusion [Not Recovered/Not Resolved]
  - Formication [Not Recovered/Not Resolved]
  - Necrosis [Not Recovered/Not Resolved]
  - Retinal haemorrhage [Not Recovered/Not Resolved]
  - Visual impairment [Not Recovered/Not Resolved]
  - Urinary incontinence [Not Recovered/Not Resolved]
  - Mitochondrial toxicity [Not Recovered/Not Resolved]
